FAERS Safety Report 7218677-4 (Version None)
Quarter: 2011Q1

REPORT INFORMATION
  Report Type: 
  Country: None (occurrence: None)
  Receive Date: 20110110
  Receipt Date: 20110105
  Transmission Date: 20110831
  Serious: Yes (Other)
  Sender: FDA-Public Use
  Company Number: US-ABBOTT-10P-163-0639999-00

PATIENT
  Sex: Female
  Weight: 102.15 kg

DRUGS (5)
  1. HUMIRA [Suspect]
     Indication: RHEUMATOID ARTHRITIS
     Route: 058
     Dates: start: 20091101
  2. LEVOTHYROXINE [Concomitant]
     Indication: HYPOTHYROIDISM
  3. WARFARIN [Concomitant]
     Indication: PRODUCT USED FOR UNKNOWN INDICATION
     Dosage: 5MG QOD 7.5MG QOD
     Route: 048
  4. PAIN MEDICATION [Concomitant]
     Indication: BACK PAIN
  5. ATENOLOL [Concomitant]
     Indication: ATRIAL FIBRILLATION

REACTIONS (10)
  - CARPAL TUNNEL SYNDROME [None]
  - MUSCLE SPASMS [None]
  - ROAD TRAFFIC ACCIDENT [None]
  - TRIGGER FINGER [None]
  - JOINT LOCK [None]
  - NODULE [None]
  - NECK PAIN [None]
  - MUSCLE TIGHTNESS [None]
  - BACK PAIN [None]
  - MENISCUS LESION [None]
